FAERS Safety Report 8108101-1 (Version None)
Quarter: 2011Q4

REPORT INFORMATION
  Report Type: 
  Country: None (occurrence: None)
  Receive Date: 20111227
  Receipt Date: 20111006
  Transmission Date: 20120403
  Serious: Yes (Other)
  Sender: FDA-Public Use
  Company Number: PHHY2011US58755

PATIENT
  Age: 46 Year
  Sex: Female

DRUGS (5)
  1. GABAPENTIN [Concomitant]
  2. GILENYA [Suspect]
     Indication: RELAPSING-REMITTING MULTIPLE SCLEROSIS
     Dosage: 0.5 MG, QD, ORAL
     Route: 048
     Dates: start: 20110506
  3. PROVIGIL [Concomitant]
  4. TREXIMET [Concomitant]
  5. BACLOFEN [Concomitant]

REACTIONS (3)
  - LEUKOPENIA [None]
  - FLUID RETENTION [None]
  - WEIGHT INCREASED [None]
